FAERS Safety Report 16107461 (Version 1)
Quarter: 2019Q1

REPORT INFORMATION
  Report Type: Spontaneous
  Country: US (occurrence: US)
  Receive Date: 20190322
  Receipt Date: 20190322
  Transmission Date: 20190418
  Serious: No
  Sender: FDA-Public Use
  Company Number: US-ARRAY-2019-05211

PATIENT

DRUGS (3)
  1. MEKTOVI [Suspect]
     Active Substance: BINIMETINIB
     Indication: MALIGNANT MELANOMA IN SITU
     Dosage: 45 MG, BID
     Route: 048
     Dates: start: 20190103
  2. BRAFTOVI [Suspect]
     Active Substance: ENCORAFENIB
     Indication: MALIGNANT MELANOMA IN SITU
     Dosage: 450 MG, QD
     Route: 048
     Dates: start: 20181229
  3. BRAFTOVI [Suspect]
     Active Substance: ENCORAFENIB
     Dosage: UNK, DOSE REDUCED

REACTIONS (1)
  - Abdominal pain upper [Unknown]
